FAERS Safety Report 10435822 (Version 1)
Quarter: 2014Q3

REPORT INFORMATION
  Report Type: Spontaneous
  Country: CH (occurrence: None)
  Receive Date: 20140904
  Receipt Date: 20140904
  Transmission Date: 20150326
  Serious: Yes (Death, Hospitalization)
  Sender: FDA-Public Use
  Company Number: CH-JNJFOC-20140709082

PATIENT
  Age: 80 Year
  Sex: Female
  Weight: 85 kg

DRUGS (21)
  1. FLUCONAZOLE. [Concomitant]
     Active Substance: FLUCONAZOLE
  2. DIGOXIN. [Concomitant]
     Active Substance: DIGOXIN
  3. NOVALGIN [Concomitant]
     Active Substance: METAMIZOLE SODIUM
  4. KCL (POTASSIUM CHLORIDE) [Concomitant]
  5. ESOMEPRAZOLE [Concomitant]
     Active Substance: ESOMEPRAZOLE
  6. PARAGOL (AGAROL) [Concomitant]
  7. XARELTO [Concomitant]
     Active Substance: RIVAROXABAN
  8. ZOLPIDEM [Concomitant]
     Active Substance: ZOLPIDEM\ZOLPIDEM TARTRATE
  9. DACOGEN [Suspect]
     Active Substance: DECITABINE
     Indication: ACUTE MYELOID LEUKAEMIA
     Dosage: 40 MG, 1 IN 1 DAY, INTRAVENOUS
     Route: 042
     Dates: start: 20130930, end: 20131004
  10. METO ZEROK (METOPROLOL SUCCINATE) [Concomitant]
  11. ELTROXIN (LEVOTHYROXINE SODIUM) [Concomitant]
  12. ZYLORIC (ALLOPURINOL) [Concomitant]
     Active Substance: ALLOPURINOL
  13. PASPERTIN (METOCLOPRAMIDE HYDROCHLORIDE) [Concomitant]
  14. PASPERTIN (METOCLOPRAMIDE HYDROCHLORIDE) [Concomitant]
  15. TORASEMID [Concomitant]
     Active Substance: TORSEMIDE
  16. DAFALGAN (PARACETAMOL) [Concomitant]
  17. FLUOXETINE [Concomitant]
     Active Substance: FLUOXETINE\FLUOXETINE HYDROCHLORIDE
  18. ONDANSETRON [Concomitant]
     Active Substance: ONDANSETRON
  19. ESOMEPRAZOLE MAGNESIUM. [Concomitant]
     Active Substance: ESOMEPRAZOLE MAGNESIUM
  20. EUVEGAL (VALERIANA OFFICINALIS ROOT/HUMULUS LUPULUS) [Concomitant]
  21. MEPHANOL (ALLOPURINOL) [Concomitant]

REACTIONS (5)
  - Cardiac failure [None]
  - Metabolic acidosis [None]
  - Pneumonia [None]
  - Sepsis [None]
  - Respiratory alkalosis [None]

NARRATIVE: CASE EVENT DATE: 20131120
